FAERS Safety Report 10179341 (Version 1)
Quarter: 2014Q2

REPORT INFORMATION
  Report Type: Spontaneous
  Country: US (occurrence: US)
  Receive Date: 20140519
  Receipt Date: 20140519
  Transmission Date: 20141212
  Serious: Yes (Hospitalization, Other)
  Sender: FDA-Public Use
  Company Number: US-ABBVIE-14P-163-1236414-00

PATIENT
  Sex: Female

DRUGS (6)
  1. DEPAKOTE [Suspect]
     Indication: PRODUCT USED FOR UNKNOWN INDICATION
  2. DEPAKOTE [Suspect]
  3. LAMICTAL [Suspect]
     Indication: CONVULSION
     Route: 048
  4. LAMICTAL [Suspect]
     Route: 048
  5. KEPPRA [Suspect]
     Indication: PRODUCT USED FOR UNKNOWN INDICATION
     Route: 065
  6. KEPPRA [Suspect]

REACTIONS (7)
  - Brain operation [Unknown]
  - Procedural complication [Unknown]
  - Visual field defect [Unknown]
  - Convulsion [Recovered/Resolved]
  - Amnesia [Unknown]
  - Agraphia [Unknown]
  - Alexia [Unknown]
